FAERS Safety Report 4991253-X (Version None)
Quarter: 2006Q2

REPORT INFORMATION
  Report Type: 
  Country: None (occurrence: None)
  Receive Date: 20060428
  Receipt Date: 20060417
  Transmission Date: 20061013
  Serious: Yes (Hospitalization)
  Sender: FDA-Public Use
  Company Number: 2006-141522-NL

PATIENT
  Age: 60 Year
  Sex: Male

DRUGS (5)
  1. REMERON [Suspect]
     Indication: DEPRESSION
     Dosage: 7.5 MG DAILY ORAL
     Route: 048
     Dates: start: 20060201, end: 20060201
  2. REMERON [Suspect]
     Indication: DEPRESSION
     Dosage: 15 MG DAILY ORAL
     Route: 048
     Dates: start: 20060201, end: 20060301
  3. REMERON [Suspect]
     Indication: DEPRESSION
     Dosage: 22.5 MG DAILY ORAL
     Route: 048
     Dates: start: 20060301, end: 20060301
  4. REMERON [Suspect]
     Indication: DEPRESSION
     Dosage: 30 MG DAILY ORAL
     Route: 048
     Dates: start: 20060301
  5. ATIVAN [Concomitant]

REACTIONS (1)
  - COMPLEX PARTIAL SEIZURES [None]
